FAERS Safety Report 6454282-5 (Version None)
Quarter: 2009Q4

REPORT INFORMATION
  Report Type: 
  Country: None (occurrence: None)
  Receive Date: 20091124
  Receipt Date: 20091111
  Transmission Date: 20100525
  Serious: Yes (Other)
  Sender: FDA-Public Use
  Company Number: TR-ELI_LILLY_AND_COMPANY-TR200911002992

PATIENT
  Sex: Female

DRUGS (1)
  1. CYMBALTA [Suspect]
     Indication: GENERALISED ANXIETY DISORDER
     Dosage: 60 MG, UNK
     Route: 048
     Dates: start: 20091110, end: 20091110

REACTIONS (3)
  - AMNESIA [None]
  - SOMNOLENCE [None]
  - SYNCOPE [None]
